FAERS Safety Report 9405690 (Version 1)
Quarter: 2013Q3

REPORT INFORMATION
  Report Type: Spontaneous
  Country: CR (occurrence: CR)
  Receive Date: 20130717
  Receipt Date: 20130717
  Transmission Date: 20140515
  Serious: Yes (Other)
  Sender: FDA-Public Use
  Company Number: PHHY2013CR024607

PATIENT
  Age: 74 Year
  Sex: Female

DRUGS (8)
  1. LAMISIL [Suspect]
     Indication: ONYCHOMYCOSIS
     Dosage: UNK UKN, QD
     Route: 048
  2. LAMISIL [Suspect]
     Indication: ONYCHOMYCOSIS
     Dosage: UNK UKN, UNK
     Route: 061
  3. AMLODIPINE [Concomitant]
     Indication: HYPERTENSION
     Dosage: 5 MG, QD
     Route: 048
  4. AMIODARONE [Concomitant]
     Indication: HYPERTENSION
     Dosage: 100 MG, QD
     Route: 048
  5. IRBESARTAN [Concomitant]
     Indication: HYPERTENSION
     Dosage: UNK UKN, QD
     Route: 048
  6. HYDROCHOROTHIAZIDE [Concomitant]
     Indication: HYPERTENSION
     Dosage: UNK UKN, QD
     Route: 048
  7. LOVASTATIN [Concomitant]
     Indication: HYPERTENSION
     Dosage: UNK UKN, QD
     Route: 048
  8. ASPIRIN [Concomitant]
     Dosage: UNK UKN, QD
     Route: 048

REACTIONS (2)
  - Fusarium infection [Not Recovered/Not Resolved]
  - Drug ineffective [Not Recovered/Not Resolved]
